FAERS Safety Report 4865473-9 (Version None)
Quarter: 2005Q4

REPORT INFORMATION
  Report Type: 
  Country: None (occurrence: None)
  Receive Date: 20051223
  Receipt Date: 20051214
  Transmission Date: 20060501
  Serious: Yes (Other)
  Sender: FDA-Public Use
  Company Number: BR-ROCHE-428805

PATIENT
  Age: 61 Year
  Sex: Female
  Weight: 60 kg

DRUGS (2)
  1. RIVOTRIL [Suspect]
     Indication: NERVOUSNESS
     Route: 048
     Dates: start: 19820615, end: 19920615
  2. RIVOTRIL [Suspect]
     Route: 048
     Dates: start: 19920615

REACTIONS (4)
  - ABASIA [None]
  - ASTHENIA [None]
  - POLYNEUROPATHY [None]
  - TREMOR [None]
